FAERS Safety Report 9918088 (Version 1)
Quarter: 2014Q1

REPORT INFORMATION
  Report Type: Spontaneous
  Country: US (occurrence: US)
  Receive Date: 20140223
  Receipt Date: 20140223
  Transmission Date: 20141002
  Serious: No
  Sender: FDA-Public Use
  Company Number: US-ALLERGAN-1319503US

PATIENT
  Sex: Female

DRUGS (1)
  1. TAZORAC CREAM 0.1% [Suspect]
     Indication: PHOTODERMATOSIS
     Route: 061

REACTIONS (3)
  - Application site erythema [Unknown]
  - Application site pruritus [Unknown]
  - Application site irritation [Unknown]
